FAERS Safety Report 23969772 (Version 3)
Quarter: 2024Q3

REPORT INFORMATION
  Report Type: Spontaneous
  Country: CO (occurrence: CO)
  Receive Date: 20240613
  Receipt Date: 20240806
  Transmission Date: 20241016
  Serious: No
  Sender: CELLTRION
  Company Number: CO-CELLTRION INC.-2024CO013623

PATIENT

DRUGS (4)
  1. INFLIXIMAB [Suspect]
     Active Substance: INFLIXIMAB
     Indication: Crohn^s disease
     Dosage: 300 MG EVERY 8 WEEKS
     Route: 042
     Dates: start: 20230315, end: 202308
  2. INFLIXIMAB [Suspect]
     Active Substance: INFLIXIMAB
     Dosage: 300 MG IN WEEK 0, WEEK 2, WEEK 6
     Dates: start: 20240517
  3. INFLIXIMAB [Suspect]
     Active Substance: INFLIXIMAB
     Dosage: 300 MILLIGRAM, EVERY 8 WEEKS
  4. INFLIXIMAB [Suspect]
     Active Substance: INFLIXIMAB
     Dosage: 300 MILLIGRAM, EVERY 8 WEEKS
     Dates: start: 20240712

REACTIONS (3)
  - Depression [Unknown]
  - Treatment noncompliance [Unknown]
  - Underdose [Unknown]
